FAERS Safety Report 8966366 (Version 3)
Quarter: 2013Q1

REPORT INFORMATION
  Report Type: Spontaneous
  Country: US (occurrence: US)
  Receive Date: 20121217
  Receipt Date: 20130204
  Transmission Date: 20140127
  Serious: Yes (Hospitalization)
  Sender: FDA-Public Use
  Company Number: US-ELI_LILLY_AND_COMPANY-US201212001806

PATIENT
  Age: 54 Year
  Sex: Male
  Weight: 104.31 kg

DRUGS (5)
  1. ZYPREXA RELPREVV [Suspect]
     Indication: SCHIZOPHRENIA
     Dosage: 300 MG, 2/M
     Route: 030
     Dates: start: 19920820
  2. ZYPREXA RELPREVV [Suspect]
     Dosage: 300 MG, 2/M
     Route: 030
     Dates: start: 20130118
  3. EFFEXOR [Concomitant]
  4. CELEXA [Concomitant]
     Dosage: 40 MG, EACH EVENING
     Route: 048
  5. ZOLPIDEM [Concomitant]
     Dosage: 10 MG, EACH EVENING
     Route: 048

REACTIONS (3)
  - Psychiatric decompensation [Recovered/Resolved]
  - Pain [Unknown]
  - Insomnia [Unknown]
